FAERS Safety Report 9052810 (Version 1)
Quarter: 2013Q1

REPORT INFORMATION
  Report Type: Spontaneous
  Country: HU (occurrence: HU)
  Receive Date: 20130207
  Receipt Date: 20130207
  Transmission Date: 20140127
  Serious: Yes (Hospitalization, Other)
  Sender: FDA-Public Use
  Company Number: HU-TEVA-383704ISR

PATIENT
  Age: 55 None
  Sex: Female

DRUGS (9)
  1. RASAGILINE MESILATE [Suspect]
     Indication: PARKINSON^S DISEASE
     Route: 048
     Dates: start: 20060719, end: 20070511
  2. MADOPAR [Concomitant]
     Indication: PARKINSON^S DISEASE
     Dosage: 300 MILLIGRAM DAILY;
     Route: 048
     Dates: start: 2007
  3. MADOPAR [Concomitant]
     Dosage: 75 MILLIGRAM DAILY;
     Route: 048
     Dates: start: 2007
  4. JUMEX [Concomitant]
     Indication: PARKINSON^S DISEASE
     Dosage: HALF A TABLET TWICE DAILY
     Route: 048
  5. RIVOTRIL [Concomitant]
     Dosage: .5 MILLIGRAM DAILY;
     Route: 048
  6. AKINETON [Concomitant]
     Dosage: 3 MILLIGRAM DAILY;
     Route: 048
     Dates: start: 2012
  7. EMOZUL [Concomitant]
     Dosage: 40 MILLIGRAM DAILY;
     Route: 048
  8. MIRTAZAPINE [Concomitant]
     Dosage: 15 MILLIGRAM DAILY;
     Route: 048
  9. KREON [Concomitant]
     Route: 048
     Dates: start: 20130115

REACTIONS (4)
  - Adenocarcinoma pancreas [Recovered/Resolved]
  - Exostosis [Recovered/Resolved]
  - Obstruction gastric [Recovered/Resolved]
  - Dysthymic disorder [Unknown]
